FAERS Safety Report 4998539-3 (Version None)
Quarter: 2006Q2

REPORT INFORMATION
  Report Type: 
  Country: None (occurrence: None)
  Receive Date: 20060508
  Receipt Date: 20060427
  Transmission Date: 20061013
  Serious: Yes (Hospitalization)
  Sender: FDA-Public Use
  Company Number: BR-2006-010363

PATIENT
  Age: 46 Year
  Sex: Female

DRUGS (2)
  1. BETAFERON (INTERFERON BETA - 1B) INJECTION, 250UG [Suspect]
     Indication: MULTIPLE SCLEROSIS
     Dosage: SEE IMAGE
     Route: 058
     Dates: start: 20030501, end: 20060402
  2. BETAFERON (INTERFERON BETA - 1B) INJECTION, 250UG [Suspect]
     Indication: MULTIPLE SCLEROSIS
     Dosage: SEE IMAGE
     Route: 058
     Dates: start: 20060411

REACTIONS (8)
  - ERYSIPELAS [None]
  - FALL [None]
  - FULL BLOOD COUNT ABNORMAL [None]
  - IMMUNOGLOBULINS ABNORMAL [None]
  - IMMUNOGLOBULINS DECREASED [None]
  - LIMB INJURY [None]
  - SKIN LACERATION [None]
  - URINARY RETENTION [None]
